FAERS Safety Report 4901874-8 (Version None)
Quarter: 2006Q1

REPORT INFORMATION
  Report Type: 
  Country: None (occurrence: None)
  Receive Date: 20060202
  Receipt Date: 20060202
  Transmission Date: 20060701
  Serious: Yes (Life-Threatening, Hospitalization)
  Sender: FDA-Public Use
  Company Number: None

PATIENT
  Age: 81 Year
  Sex: Male
  Weight: 55.6564 kg

DRUGS (1)
  1. LOVENOX [Suspect]
     Dosage: 80 MG QD SQ
     Route: 058
     Dates: start: 20050421, end: 20050429

REACTIONS (2)
  - BLOOD CREATININE INCREASED [None]
  - RETROPERITONEAL HAEMORRHAGE [None]
